FAERS Safety Report 11809356 (Version 1)
Quarter: 2015Q4

REPORT INFORMATION
  Report Type: Report from Study
  Country: DE (occurrence: DE)
  Receive Date: 20151207
  Receipt Date: 20151207
  Transmission Date: 20160305
  Serious: Yes (Hospitalization, Other)
  Sender: FDA-Public Use
  Company Number: DE-ROCHE-1672052

PATIENT
  Age: 82 Year
  Sex: Male
  Weight: 70 kg

DRUGS (6)
  1. RANIBIZUMAB [Suspect]
     Active Substance: RANIBIZUMAB
     Indication: RETINAL CYST
     Route: 050
     Dates: start: 20150713, end: 20150713
  2. INFLANEFRAN [Concomitant]
     Route: 065
     Dates: start: 20150828
  3. RANIBIZUMAB [Suspect]
     Active Substance: RANIBIZUMAB
     Indication: NEOVASCULAR AGE-RELATED MACULAR DEGENERATION
     Dosage: DATE OF LAST DOSE PRIOR TO SAE: 13/JUL/2015
     Route: 050
     Dates: start: 20141204
  4. RANIBIZUMAB [Suspect]
     Active Substance: RANIBIZUMAB
     Indication: SUBRETINAL FLUID
  5. VIGAMOX [Concomitant]
     Active Substance: MOXIFLOXACIN HYDROCHLORIDE
     Route: 065
     Dates: start: 20150820, end: 20150828
  6. DOXYCYCLINE. [Concomitant]
     Active Substance: DOXYCYCLINE
     Route: 065
     Dates: start: 20150828

REACTIONS (2)
  - Visual acuity reduced [Unknown]
  - Hypopyon [Not Recovered/Not Resolved]

NARRATIVE: CASE EVENT DATE: 20150820
